FAERS Safety Report 9871346 (Version 1)
Quarter: 2014Q1

REPORT INFORMATION
  Report Type: Spontaneous
  Country: IT (occurrence: IT)
  Receive Date: 20140205
  Receipt Date: 20140205
  Transmission Date: 20141002
  Serious: Yes (Other)
  Sender: FDA-Public Use
  Company Number: IT-VERTEX PHARMACEUTICALS INC-2014-000575

PATIENT
  Age: 41 Year
  Sex: Male

DRUGS (7)
  1. INCIVO [Suspect]
     Indication: HEPATITIS C
     Dosage: 750 MG, TID
     Dates: start: 201304, end: 20130704
  2. PEGINTERFERON ALFA-2A [Suspect]
     Indication: HEPATITIS C
     Dates: start: 201304
  3. RIBAVIRIN [Suspect]
     Indication: HEPATITIS C
     Dosage: UNK
     Dates: start: 201304
  4. EMTRICITABINE [Suspect]
     Indication: ANTIVIRAL TREATMENT
  5. TENOFOVIR DISOPROXIL FUMARATE [Interacting]
     Indication: ANTIVIRAL TREATMENT
  6. ATAZANAVIR [Suspect]
     Indication: ANTIVIRAL TREATMENT
  7. RITONAVIR [Suspect]
     Indication: ANTIVIRAL TREATMENT

REACTIONS (6)
  - Renal impairment [Recovered/Resolved]
  - Nephropathy toxic [Not Recovered/Not Resolved]
  - Drug interaction [Not Recovered/Not Resolved]
  - Anaemia [Recovered/Resolved]
  - Weight decreased [Recovered/Resolved]
  - Off label use [Recovered/Resolved]
